FAERS Safety Report 11122458 (Version 2)
Quarter: 2015Q3

REPORT INFORMATION
  Report Type: Spontaneous
  Country: US (occurrence: US)
  Receive Date: 20150519
  Receipt Date: 20150707
  Transmission Date: 20151125
  Serious: No
  Sender: FDA-Public Use
  Company Number: US-GLAXOSMITHKLINE-US2015036062

PATIENT
  Age: 63 Year
  Sex: Female

DRUGS (1)
  1. NICORETTE FRESH MINT [Suspect]
     Active Substance: NICOTINE
     Indication: SMOKING CESSATION THERAPY
     Dosage: 2 MG, UNK

REACTIONS (5)
  - Fatigue [Not Recovered/Not Resolved]
  - Toothache [Not Recovered/Not Resolved]
  - Product quality issue [Unknown]
  - Pain in jaw [Not Recovered/Not Resolved]
  - Nicotine dependence [Not Recovered/Not Resolved]
